FAERS Safety Report 7973114-7 (Version None)
Quarter: 2011Q4

REPORT INFORMATION
  Report Type: 
  Country: None (occurrence: None)
  Receive Date: 20111209
  Receipt Date: 20111129
  Transmission Date: 20120403
  Serious: Yes (Hospitalization)
  Sender: FDA-Public Use
  Company Number: DEXA20110001

PATIENT
  Age: 5 Year
  Sex: Female

DRUGS (6)
  1. PYRAZINAMIDE [Concomitant]
  2. DEXAMETHASONE ELIXIR (DEXAMETHASONE) [Suspect]
     Indication: TUBERCULOSIS OF CENTRAL NERVOUS SYSTEM
     Dosage: 1 MG/KG/DAY
  3. RIFAMPIN (RIFAMPICIN) (RIFAMPICIN) [Concomitant]
  4. STREPTOMYCIN (STREPTOMYCIN) (STREPTOMYCIN) [Concomitant]
  5. ISONIAZID [Concomitant]
  6. LEVOFLOXACIN [Concomitant]

REACTIONS (16)
  - CONDITION AGGRAVATED [None]
  - RESPIRATION ABNORMAL [None]
  - INFECTION IN AN IMMUNOCOMPROMISED HOST [None]
  - CATHETER SITE INFLAMMATION [None]
  - CATHETER SITE ERYTHEMA [None]
  - STENOTROPHOMONAS INFECTION [None]
  - GRAND MAL CONVULSION [None]
  - ACINETOBACTER INFECTION [None]
  - CENTRAL NERVOUS SYSTEM INFECTION [None]
  - CNS VENTRICULITIS [None]
  - HYDROCEPHALUS [None]
  - CARDIAC ARREST [None]
  - PYREXIA [None]
  - CEREBRAL VENTRICLE DILATATION [None]
  - MULTIPLE-DRUG RESISTANCE [None]
  - CEREBRAL ASPERGILLOSIS [None]
